FAERS Safety Report 9673763 (Version 2)
Quarter: 2013Q4

REPORT INFORMATION
  Report Type: Spontaneous
  Country: US (occurrence: US)
  Receive Date: 20131106
  Receipt Date: 20131106
  Transmission Date: 20140711
  Serious: No
  Sender: FDA-Public Use
  Company Number: US-BAXTER-2013BAX000452

PATIENT
  Age: 83 Year
  Sex: Male

DRUGS (5)
  1. DIANEAL LOW CALCIUM [Suspect]
     Indication: PERITONEAL DIALYSIS
     Dosage: 2L
     Route: 033
     Dates: start: 20121210
  2. DIANEAL LOW CALCIUM [Suspect]
     Dosage: 1 L
     Route: 033
     Dates: start: 20121231
  3. DIANEAL LOW CALCIUM [Suspect]
     Indication: PERITONEAL DIALYSIS
     Dosage: 2 L
     Route: 033
     Dates: start: 20121210
  4. DIANEAL LOW CALCIUM [Suspect]
     Dosage: 1L
     Route: 033
     Dates: start: 20121231
  5. DIANEAL LOW CALCIUM (ULTRABAG) [Suspect]
     Indication: PERITONEAL DIALYSIS
     Dosage: 1 L
     Route: 033
     Dates: start: 20121210, end: 20121231

REACTIONS (1)
  - Hernia [Not Recovered/Not Resolved]
